FAERS Safety Report 4738988-1 (Version None)
Quarter: 2005Q3

REPORT INFORMATION
  Report Type: 
  Country: None (occurrence: None)
  Receive Date: 20050801
  Receipt Date: 20050421
  Transmission Date: 20060218
  Serious: Yes (Hospitalization)
  Sender: FDA-Public Use
  Company Number: 213958

PATIENT
  Age: 36 Year
  Sex: Male
  Weight: 71.2 kg

DRUGS (5)
  1. RITUXAN [Suspect]
     Indication: LYMPHOMA
     Dosage: 675 MG, INTRAVENOUS
     Route: 042
     Dates: start: 20050217, end: 20050217
  2. ACETAMINOPHEN [Concomitant]
  3. BENADRYL [Concomitant]
  4. DEMEROL [Concomitant]
  5. VISTARIL [Concomitant]

REACTIONS (1)
  - INFUSION RELATED REACTION [None]
